FAERS Safety Report 13094187 (Version 1)
Quarter: 2017Q1

REPORT INFORMATION
  Report Type: Spontaneous
  Country: CA (occurrence: CA)
  Receive Date: 20170106
  Receipt Date: 20170106
  Transmission Date: 20170428
  Serious: Yes (Other)
  Sender: FDA-Public Use
  Company Number: CA-PRINSTON PHARMACEUTICAL INC.-2016PRN00373

PATIENT
  Age: 64 Year
  Sex: Male

DRUGS (1)
  1. ROPINIROLE HYDROCHLORIDE. [Suspect]
     Active Substance: ROPINIROLE HYDROCHLORIDE
     Indication: PARKINSON^S DISEASE
     Route: 065

REACTIONS (2)
  - Impulse-control disorder [Recovered/Resolved]
  - Drug withdrawal syndrome [Recovering/Resolving]
